FAERS Safety Report 9815976 (Version 4)
Quarter: 2014Q3

REPORT INFORMATION
  Report Type: Report from Study
  Country: JP (occurrence: JP)
  Receive Date: 20140114
  Receipt Date: 20140818
  Transmission Date: 20150326
  Serious: Yes (Hospitalization)
  Sender: FDA-Public Use
  Company Number: JP-PFIZER INC-2014005407

PATIENT
  Age: 76 Year
  Sex: Male
  Weight: 58 kg

DRUGS (16)
  1. MUCODYNE [Concomitant]
     Active Substance: CARBOCYSTEINE
     Dosage: 500 MG, 3X/DAY
     Route: 048
     Dates: start: 20130807, end: 20131128
  2. NOVAMIN [Concomitant]
     Active Substance: PROCHLORPERAZINE MALEATE
     Dosage: 10 MG, 2X/DAY
     Route: 048
     Dates: start: 20130816, end: 20131128
  3. GASMOTIN [Concomitant]
     Active Substance: MOSAPRIDE CITRATE
     Dosage: 5 MG, 3X/DAY
     Route: 048
     Dates: start: 20131011, end: 20131216
  4. XALKORI [Suspect]
     Active Substance: CRIZOTINIB
     Dosage: 200 MG, 1X/DAY
     Route: 048
     Dates: start: 20131101, end: 20131108
  5. DIART [Concomitant]
     Active Substance: AZOSEMIDE
     Dosage: 30 MG, 1X/DAY
     Route: 048
     Dates: start: 20130621, end: 20130803
  6. MAGLAX [Concomitant]
     Active Substance: MAGNESIUM OXIDE
     Dosage: 330 MG, 3X/DAY
     Route: 048
     Dates: start: 20130705, end: 20131003
  7. RISUMIC [Concomitant]
     Active Substance: AMEZINIUM METILSULFATE
     Dosage: 10 MG, 2X/DAY
     Route: 048
     Dates: start: 20130719, end: 20131203
  8. NAUZELIN [Concomitant]
     Active Substance: DOMPERIDONE
     Dosage: 10 MG, 3X/DAY
     Route: 048
     Dates: start: 20131018, end: 20131216
  9. XALKORI [Suspect]
     Active Substance: CRIZOTINIB
     Indication: NON-SMALL CELL LUNG CANCER
     Dosage: 250 MG, 2X/DAY
     Route: 048
     Dates: start: 20130527, end: 20130803
  10. NEXIUM [Concomitant]
     Active Substance: ESOMEPRAZOLE MAGNESIUM
     Dosage: 20 MG, 1X/DAY
     Route: 048
     Dates: start: 20130527, end: 20130823
  11. URSO [Concomitant]
     Active Substance: URSODIOL
     Dosage: 100 MG, 3X/DAY
     Route: 048
     Dates: start: 20130607, end: 20131003
  12. PURSENNID [Concomitant]
     Active Substance: SENNOSIDES A AND B CALCIUM
     Dosage: 24 MG, 1X/DAY
     Route: 048
     Dates: start: 20131011
  13. CONSTAN [Concomitant]
     Active Substance: ALPRAZOLAM
     Dosage: 0.4 MG, 2X/DAY
     Route: 048
     Dates: start: 20131018
  14. PROHEPARUM [Concomitant]
     Active Substance: CHOLINE BITARTRATE\CYSTEINE\INOSITOL\MAMMAL LIVER
     Dosage: UNK, 3X/DAY
     Route: 048
     Dates: start: 20130607, end: 20131003
  15. XALKORI [Suspect]
     Active Substance: CRIZOTINIB
     Dosage: 200 MG, 2X/DAY
     Route: 048
     Dates: start: 20130827, end: 20131031
  16. MAGLAX [Concomitant]
     Active Substance: MAGNESIUM OXIDE
     Dosage: 990 MG, 3X/DAY
     Route: 048
     Dates: start: 20131011

REACTIONS (2)
  - Pyelonephritis acute [Recovered/Resolved]
  - Cerebral infarction [Recovering/Resolving]

NARRATIVE: CASE EVENT DATE: 20130730
